FAERS Safety Report 8851786 (Version 3)
Quarter: 2012Q4

REPORT INFORMATION
  Report Type: 
  Country: US (occurrence: US)
  Receive Date: 20121022
  Receipt Date: 20121210
  Transmission Date: 20130627
  Serious: Yes (Other)
  Sender: FDA-Public Use
  Company Number: US-PFIZER INC-2012257908

PATIENT
  Sex: Female

DRUGS (2)
  1. TOVIAZ [Suspect]
     Dosage: UNK
  2. CALCIUM WITH VITAMIN D [Concomitant]
     Dosage: UNK

REACTIONS (6)
  - Arthropathy [Unknown]
  - Visual impairment [Unknown]
  - Constipation [Unknown]
  - Nocturia [Unknown]
  - Dry mouth [Unknown]
  - Vision blurred [Unknown]
